FAERS Safety Report 6846304-4 (Version None)
Quarter: 2010Q3

REPORT INFORMATION
  Report Type: 
  Country: None (occurrence: None)
  Receive Date: 20100715
  Receipt Date: 20070917
  Transmission Date: 20110219
  Serious: Yes (Hospitalization)
  Sender: FDA-Public Use
  Company Number: US-PFIZER INC-2007078486

PATIENT
  Sex: Female

DRUGS (18)
  1. CHANTIX [Suspect]
  2. LORTAB [Suspect]
  3. BENADRYL [Suspect]
  4. TOPROL-XL [Concomitant]
  5. PRAVASTATIN [Concomitant]
  6. INVESTIGATIONAL DRUG [Concomitant]
  7. ACETYLSALICYLIC ACID [Concomitant]
  8. PLAVIX [Concomitant]
  9. POTASSIUM CHLORIDE [Concomitant]
  10. FOLTX [Concomitant]
  11. NITROGLYCERIN [Concomitant]
  12. ISOSORBIDE MONONITRATE [Concomitant]
  13. PAROXETINE [Concomitant]
  14. PLAVIX [Concomitant]
  15. NEXIUM [Concomitant]
  16. FLEXERIL [Concomitant]
  17. LISINOPRIL [Concomitant]
  18. CALCIUM WITH VITAMIN D [Concomitant]

REACTIONS (1)
  - MENTAL STATUS CHANGES [None]
